FAERS Safety Report 8245611-0 (Version None)
Quarter: 2012Q1

REPORT INFORMATION
  Report Type: 
  Country: None (occurrence: None)
  Receive Date: 20120330
  Receipt Date: 20120322
  Transmission Date: 20120608
  Serious: Yes (Other)
  Sender: FDA-Public Use
  Company Number: US-BIOGENIDEC-2012BI008614

PATIENT
  Age: 40 Year
  Sex: Female

DRUGS (10)
  1. TYSABRI [Suspect]
     Indication: MULTIPLE SCLEROSIS
     Route: 042
     Dates: start: 20110615, end: 20110714
  2. FLAXSEED [Concomitant]
  3. MAGNESIUM [Concomitant]
     Indication: SUPPLEMENTATION THERAPY
  4. FISH OIL [Concomitant]
  5. VITAMIN D [Concomitant]
  6. MULTI-VITAMIN [Concomitant]
  7. PROZAC [Concomitant]
  8. CALCIUM CARBONATE [Concomitant]
  9. VITAMIN B COMPLEX CAP [Concomitant]
  10. XANAX [Concomitant]

REACTIONS (2)
  - CENTRAL NERVOUS SYSTEM LESION [None]
  - INFUSION RELATED REACTION [None]
